FAERS Safety Report 6264484-9 (Version None)
Quarter: 2009Q3

REPORT INFORMATION
  Report Type: 
  Country: None (occurrence: None)
  Receive Date: 20090710
  Receipt Date: 20090629
  Transmission Date: 20100115
  Serious: Yes (Hospitalization)
  Sender: FDA-Public Use
  Company Number: US-NOVOPROD-288841

PATIENT
  Sex: Female

DRUGS (1)
  1. LEVEMIR [Suspect]
     Dosage: 35 IU, QD IN THE MORNING
     Route: 058
     Dates: start: 20080101

REACTIONS (1)
  - ANAEMIA [None]
